FAERS Safety Report 7717548-4 (Version None)
Quarter: 2011Q3

REPORT INFORMATION
  Report Type: 
  Country: None (occurrence: None)
  Receive Date: 20110823
  Receipt Date: 20070828
  Transmission Date: 20111222
  Serious: Yes (Other)
  Sender: FDA-Public Use
  Company Number: 2007071937

PATIENT
  Sex: Male

DRUGS (1)
  1. ATGAM [Suspect]

REACTIONS (1)
  - PYREXIA [None]
